FAERS Safety Report 8654898 (Version 2)
Quarter: 2012Q4

REPORT INFORMATION
  Report Type: 
  Country: US (occurrence: US)
  Receive Date: 20120709
  Receipt Date: 20120917
  Transmission Date: 20130627
  Serious: Yes (Hospitalization)
  Sender: FDA-Public Use
  Company Number: US-B.I. PHARMACEUTICALS,INC./RIDGEFIELD-2012-BP-14862BP

PATIENT
  Age: 55 Year
  Sex: Male

DRUGS (7)
  1. PRADAXA [Suspect]
     Indication: ATRIAL FIBRILLATION
     Dosage: 300 mg
     Route: 048
     Dates: start: 2011
  2. LASIX [Concomitant]
     Dosage: 40 mg
     Route: 048
  3. METOPROLOL [Concomitant]
     Indication: ATRIAL FIBRILLATION
     Dosage: 200 mg
     Route: 048
  4. CELEXA [Concomitant]
     Dosage: 10 mg
  5. DIGOXIN [Concomitant]
     Dosage: 0.125 mg
  6. DILTIAZEM CD [Concomitant]
     Dosage: 120 mg
     Route: 048
  7. SIMVASTATIN [Concomitant]
     Dosage: 20 mg
     Route: 048

REACTIONS (3)
  - Cerebrovascular accident [Recovered/Resolved with Sequelae]
  - Thrombosis [Recovered/Resolved]
  - Pain in extremity [Not Recovered/Not Resolved]
